FAERS Safety Report 8154631-6 (Version None)
Quarter: 2012Q1

REPORT INFORMATION
  Report Type: 
  Country: None (occurrence: None)
  Receive Date: 20120221
  Receipt Date: 20120206
  Transmission Date: 20120608
  Serious: Yes (Other)
  Sender: FDA-Public Use
  Company Number: FR-JHP PHARMACEUTICALS, LLC-JHP201200102

PATIENT
  Age: 26 Year
  Sex: Female

DRUGS (2)
  1. SUMATRIPTAN SUCCINATE [Suspect]
     Indication: CLUSTER HEADACHE
     Dosage: 1-2 INJECTIONS PER MONTH
     Route: 058
     Dates: start: 20070601, end: 20100201
  2. VERPAMIL HCL [Concomitant]
     Indication: CLUSTER HEADACHE
     Dosage: 240 MG, BID
     Route: 048
     Dates: start: 20070601

REACTIONS (1)
  - VISUAL FIELD DEFECT [None]
